FAERS Safety Report 25546691 (Version 1)
Quarter: 2025Q3

REPORT INFORMATION
  Report Type: Spontaneous
  Country: US (occurrence: US)
  Receive Date: 20250714
  Receipt Date: 20250714
  Transmission Date: 20251020
  Serious: Yes (Other)
  Sender: APOTEX
  Company Number: US-APOTEX-2025AP009608

PATIENT
  Age: 40 Year
  Sex: Female

DRUGS (5)
  1. LEFLUNOMIDE [Suspect]
     Active Substance: LEFLUNOMIDE
     Indication: Inflammation
     Dosage: 20 MILLIGRAM, QD
     Route: 048
  2. LEFLUNOMIDE [Suspect]
     Active Substance: LEFLUNOMIDE
     Dosage: 10 MILLIGRAM, QD
     Route: 048
  3. LEFLUNOMIDE [Suspect]
     Active Substance: LEFLUNOMIDE
     Dosage: 20 MILLIGRAM, QD
     Route: 048
  4. AVACOPAN [Concomitant]
     Active Substance: AVACOPAN
     Indication: Granulomatosis with polyangiitis
     Dosage: 300 MILLIGRAM, BID
     Route: 065
  5. CYCLOPHOSPHAMIDE [Concomitant]
     Active Substance: CYCLOPHOSPHAMIDE
     Indication: Granulomatosis with polyangiitis
     Dosage: 100 MILLIGRAM, QD
     Route: 065

REACTIONS (2)
  - Leukopenia [Recovered/Resolved]
  - Mouth ulceration [Recovered/Resolved]
